FAERS Safety Report 6559071-9 (Version None)
Quarter: 2010Q1

REPORT INFORMATION
  Report Type: 
  Country: None (occurrence: None)
  Receive Date: 20100129
  Receipt Date: 20100121
  Transmission Date: 20100710
  Serious: Yes (Hospitalization, Disabling, Other)
  Sender: FDA-Public Use
  Company Number: DE-ABBOTT-09P-062-0609607-00

PATIENT
  Sex: Female
  Weight: 62 kg

DRUGS (2)
  1. HUMIRA [Suspect]
     Indication: PSORIATIC ARTHROPATHY
     Route: 058
     Dates: start: 20060515, end: 20090701
  2. REMIFEMIN PLUS [Concomitant]
     Indication: POSTMENOPAUSE
     Dates: start: 20050101

REACTIONS (11)
  - AMYOTROPHIC LATERAL SCLEROSIS [None]
  - BALANCE DISORDER [None]
  - DYSPHAGIA [None]
  - FALL [None]
  - GAIT DISTURBANCE [None]
  - MONOPARESIS [None]
  - MOTOR NEURONE DISEASE [None]
  - NEUROLOGICAL EXAMINATION ABNORMAL [None]
  - PSEUDOBULBAR PALSY [None]
  - QUADRIPARESIS [None]
  - SPEECH DISORDER [None]
